FAERS Safety Report 24623895 (Version 1)
Quarter: 2024Q4

REPORT INFORMATION
  Report Type: Spontaneous
  Country: US (occurrence: US)
  Receive Date: 20241115
  Receipt Date: 20241115
  Transmission Date: 20250115
  Serious: Yes (Hospitalization)
  Sender: TEVA
  Company Number: US-TEVA-VS-3263822

PATIENT
  Age: 71 Year
  Sex: Female

DRUGS (4)
  1. CLONIDINE [Suspect]
     Active Substance: CLONIDINE
     Indication: Cardiovascular disorder
     Dosage: SINGLE DOSE
     Route: 065
     Dates: start: 20240915
  2. TELMISARTAN [Suspect]
     Active Substance: TELMISARTAN
     Indication: Cardiovascular disorder
     Dosage: SINGLE DOSE
     Route: 065
     Dates: start: 20240915
  3. TAMSULOSIN [Suspect]
     Active Substance: TAMSULOSIN
     Indication: Cardiovascular disorder
     Dosage: SINGLE DOSE
     Route: 065
     Dates: start: 20240915
  4. CARVEDILOL [Concomitant]
     Active Substance: CARVEDILOL
     Indication: Essential hypertension
     Route: 065
     Dates: start: 20231113

REACTIONS (2)
  - Acute kidney injury [Unknown]
  - Hypotension [Unknown]

NARRATIVE: CASE EVENT DATE: 20240901
